FAERS Safety Report 7675746-2 (Version None)
Quarter: 2011Q3

REPORT INFORMATION
  Report Type: 
  Country: None (occurrence: None)
  Receive Date: 20110810
  Receipt Date: 20110622
  Transmission Date: 20111222
  Serious: No
  Sender: FDA-Public Use
  Company Number: US-TYCO HEALTHCARE/MALLINCKRODT-T201101284

PATIENT
  Age: 53 Year
  Sex: Male

DRUGS (2)
  1. LEXAPRO [Concomitant]
     Indication: DEPRESSION
     Dosage: UNK
  2. PENNSAID [Suspect]
     Indication: ARTHRITIS
     Dosage: 40 GTT, QID
     Route: 048

REACTIONS (1)
  - INCORRECT ROUTE OF DRUG ADMINISTRATION [None]
